FAERS Safety Report 5795850-3 (Version None)
Quarter: 2008Q3

REPORT INFORMATION
  Report Type: 
  Country: None (occurrence: None)
  Receive Date: 20080701
  Receipt Date: 20080619
  Transmission Date: 20090109
  Serious: Yes (Other)
  Sender: FDA-Public Use
  Company Number: PHHO2008SG07712

PATIENT
  Sex: Male
  Weight: 53.7 kg

DRUGS (1)
  1. TYZEKA [Suspect]
     Indication: HEPATITIS B
     Dosage: 600 MG, UNK
     Route: 048
     Dates: start: 20070803

REACTIONS (2)
  - ANGIOPATHY [None]
  - HYPOAESTHESIA [None]
